FAERS Safety Report 5208079-4 (Version None)
Quarter: 2006Q4

REPORT INFORMATION
  Report Type: 
  Country: None (occurrence: None)
  Receive Date: 20061027
  Receipt Date: 20060727
  Transmission Date: 20070319
  Serious: Yes (Other)
  Sender: FDA-Public Use
  Company Number: 200616235US

PATIENT
  Sex: Female

DRUGS (1)
  1. KETEK [Suspect]
     Indication: LUNG INFECTION
     Dosage: 400 MG QD PO
     Route: 048
     Dates: start: 20060501

REACTIONS (1)
  - PSEUDOMEMBRANOUS COLITIS [None]
